FAERS Safety Report 9566389 (Version 1)
Quarter: 2013Q3

REPORT INFORMATION
  Report Type: Spontaneous
  Country: US (occurrence: US)
  Receive Date: 20130930
  Receipt Date: 20130930
  Transmission Date: 20140515
  Serious: No
  Sender: FDA-Public Use
  Company Number: US-PURDUE-USA-2012-0092763

PATIENT
  Age: 68 Year
  Sex: Female

DRUGS (1)
  1. INTERMEZZO [Suspect]
     Indication: INSOMNIA
     Dosage: 1.75 MG, HS
     Route: 060
     Dates: start: 20120901, end: 20120902

REACTIONS (1)
  - Drug ineffective [Not Recovered/Not Resolved]
